FAERS Safety Report 13027923 (Version 1)
Quarter: 2016Q4

REPORT INFORMATION
  Report Type: Spontaneous
  Country: GB (occurrence: GB)
  Receive Date: 20161214
  Receipt Date: 20161214
  Transmission Date: 20170207
  Serious: Yes (Disabling)
  Sender: FDA-Public Use
  Company Number: GB-TEVA-717921ACC

PATIENT
  Age: 72 Year
  Sex: Female
  Weight: 86 kg

DRUGS (9)
  1. LEVOTHYROXINE. [Concomitant]
     Active Substance: LEVOTHYROXINE
     Dosage: 1 DOSAGE FORMS DAILY;
     Dates: start: 20140620
  2. OMEPRAZOLE. [Concomitant]
     Active Substance: OMEPRAZOLE
     Dosage: 2 DOSAGE FORMS DAILY;
     Dates: start: 20140424
  3. PRAVASTATIN. [Suspect]
     Active Substance: PRAVASTATIN
     Dates: start: 20160114
  4. RAMIPRIL. [Concomitant]
     Active Substance: RAMIPRIL
     Dosage: 1 DOSAGE FORMS DAILY;
     Dates: start: 20140620
  5. ZEROBASE [Concomitant]
     Indication: DRY SKIN
     Dates: start: 20160616
  6. PRAVASTATIN. [Suspect]
     Active Substance: PRAVASTATIN
     Dates: start: 20161018, end: 20161122
  7. NASEPTIN [Concomitant]
     Active Substance: CHLORHEXIDINE HYDROCHLORIDE\NEOMYCIN SULFATE
     Dosage: 2 DOSAGE FORMS DAILY; APPLY TO NOSTRILS.
     Route: 045
     Dates: start: 20160913, end: 20161011
  8. AMLODIPINE [Concomitant]
     Active Substance: AMLODIPINE BESYLATE
     Dosage: 1 DOSAGE FORMS DAILY;
     Dates: start: 20150209
  9. INFLUENZA VIRUS [Concomitant]
     Active Substance: INFLUENZA VIRUS VACCINE
     Dates: start: 20161004, end: 20161004

REACTIONS (3)
  - Oropharyngeal pain [Recovered/Resolved]
  - Headache [Recovered/Resolved]
  - Swollen tongue [Recovered/Resolved]

NARRATIVE: CASE EVENT DATE: 20161018
